FAERS Safety Report 12244496 (Version 1)
Quarter: 2016Q2

REPORT INFORMATION
  Report Type: Spontaneous
  Country: GB (occurrence: GB)
  Receive Date: 20160407
  Receipt Date: 20160407
  Transmission Date: 20160815
  Serious: Yes (Other)
  Sender: FDA-Public Use
  Company Number: GB-DEXPHARM-20160653

PATIENT
  Age: 78 Year
  Sex: Female
  Weight: 49 kg

DRUGS (9)
  1. OMEPRAZOLE. [Suspect]
     Active Substance: OMEPRAZOLE
     Indication: DYSPEPSIA
     Route: 048
     Dates: start: 201507, end: 201601
  2. ISMO [Concomitant]
     Active Substance: ISOSORBIDE MONONITRATE
  3. METFORMIN [Concomitant]
     Active Substance: METFORMIN HYDROCHLORIDE
  4. DIGOXIN. [Concomitant]
     Active Substance: DIGOXIN
  5. BISOPROLOL [Concomitant]
     Active Substance: BISOPROLOL
  6. ATORVASTATIN [Concomitant]
     Active Substance: ATORVASTATIN
  7. DONEPEZIL. [Concomitant]
     Active Substance: DONEPEZIL
  8. RAMIPRIL. [Concomitant]
     Active Substance: RAMIPRIL
  9. FUROSEMIDE. [Concomitant]
     Active Substance: FUROSEMIDE

REACTIONS (3)
  - Abnormal behaviour [Unknown]
  - Hypocalcaemia [Unknown]
  - Hypomagnesaemia [Unknown]
